FAERS Safety Report 16873896 (Version 3)
Quarter: 2020Q4

REPORT INFORMATION
  Report Type: Other
  Country: US (occurrence: US)
  Receive Date: 20191001
  Receipt Date: 20201229
  Transmission Date: 20210113
  Serious: Yes (Other)
  Sender: FDA-Public Use
  Company Number: US-ROCHE-2167598

PATIENT
  Age: 56 Year
  Sex: Female
  Weight: 55.39 kg

DRUGS (5)
  1. OCREVUS [Suspect]
     Active Substance: OCRELIZUMAB
     Indication: RELAPSING MULTIPLE SCLEROSIS
     Dosage: DATE OF TREATMENT: 08/JUN/2020, 02/OCT/2019, 12/19, 30/DEC/2017
     Route: 042
     Dates: start: 20180206
  2. OCREVUS [Suspect]
     Active Substance: OCRELIZUMAB
     Indication: MULTIPLE SCLEROSIS
     Route: 065
     Dates: start: 20180220
  3. OCREVUS [Suspect]
     Active Substance: OCRELIZUMAB
     Route: 042
     Dates: start: 2017
  4. OCREVUS [Suspect]
     Active Substance: OCRELIZUMAB
     Route: 065
  5. OCREVUS [Suspect]
     Active Substance: OCRELIZUMAB
     Route: 065
     Dates: start: 2018

REACTIONS (18)
  - Rash [Recovered/Resolved]
  - Urinary tract infection fungal [Not Recovered/Not Resolved]
  - Fatigue [Recovered/Resolved]
  - Infection parasitic [Recovered/Resolved]
  - Nervous system disorder [Recovering/Resolving]
  - Skin abrasion [Unknown]
  - Off label use [Unknown]
  - Bacterial rhinitis [Not Recovered/Not Resolved]
  - Gastric disorder [Not Recovered/Not Resolved]
  - Diarrhoea [Not Recovered/Not Resolved]
  - Musculoskeletal stiffness [Recovered/Resolved with Sequelae]
  - Sleep apnoea syndrome [Not Recovered/Not Resolved]
  - Intentional product misuse [Unknown]
  - Gastrointestinal pain [Not Recovered/Not Resolved]
  - Haematotoxicity [Not Recovered/Not Resolved]
  - Pain [Recovered/Resolved]
  - Multiple sclerosis relapse [Recovering/Resolving]
  - Feeling hot [Recovered/Resolved]

NARRATIVE: CASE EVENT DATE: 2018
